FAERS Safety Report 21232469 (Version 1)
Quarter: 2022Q3

REPORT INFORMATION
  Report Type: Spontaneous
  Country: JP (occurrence: JP)
  Receive Date: 20220819
  Receipt Date: 20220819
  Transmission Date: 20221027
  Serious: Yes (Other)
  Sender: FDA-Public Use
  Company Number: JP-CHUGAI-2022026782

PATIENT
  Age: 19 Year
  Sex: Male

DRUGS (1)
  1. HEMLIBRA [Suspect]
     Active Substance: EMICIZUMAB-KXWH
     Indication: Haemophilia A without inhibitors
     Dosage: 90 MILLIGRAM, ONCE/WEEK
     Route: 058

REACTIONS (5)
  - Muscle haemorrhage [Unknown]
  - Fall [Unknown]
  - Contusion [Unknown]
  - Joint dislocation [Unknown]
  - Peripheral venous disease [Not Recovered/Not Resolved]
